FAERS Safety Report 6357074-0 (Version None)
Quarter: 2009Q3

REPORT INFORMATION
  Report Type: 
  Country: None (occurrence: None)
  Receive Date: 20090910
  Receipt Date: 20090724
  Transmission Date: 20100115
  Serious: Yes (Disabling)
  Sender: FDA-Public Use
  Company Number: 336079

PATIENT
  Age: 64 Year
  Sex: Male

DRUGS (1)
  1. NITROPRESS [Suspect]
     Indication: DRUG USE FOR UNKNOWN INDICATION
     Dates: start: 20090701, end: 20090701

REACTIONS (3)
  - AORTIC VALVE REPLACEMENT [None]
  - CEREBROVASCULAR ACCIDENT [None]
  - HYPOVOLAEMIA [None]
